FAERS Safety Report 18552861 (Version 1)
Quarter: 2020Q4

REPORT INFORMATION
  Report Type: Spontaneous
  Country: US (occurrence: US)
  Receive Date: 20201127
  Receipt Date: 20201127
  Transmission Date: 20210114
  Serious: Yes (Hospitalization)
  Sender: FDA-Public Use
  Company Number: US-AUROBINDO-AUR-APL-2020-058447

PATIENT
  Age: 55 Year
  Sex: Female

DRUGS (4)
  1. PHENTERMINE. [Suspect]
     Active Substance: PHENTERMINE
     Indication: EATING DISORDER
     Dosage: 37.5 MILLIGRAM
     Route: 048
  2. LISDEXAMFETAMINE [Suspect]
     Active Substance: LISDEXAMFETAMINE
     Indication: OBESITY
  3. LISDEXAMFETAMINE [Suspect]
     Active Substance: LISDEXAMFETAMINE
     Indication: EATING DISORDER
     Dosage: 40 MILLIGRAM
     Route: 048
  4. PHENTERMINE. [Suspect]
     Active Substance: PHENTERMINE
     Indication: OBESITY

REACTIONS (5)
  - Dyspnoea [Recovered/Resolved]
  - Stress cardiomyopathy [Recovered/Resolved]
  - Hyperhidrosis [Recovered/Resolved]
  - Off label use [Unknown]
  - Nausea [Recovered/Resolved]
